FAERS Safety Report 6232833-3 (Version None)
Quarter: 2009Q2

REPORT INFORMATION
  Report Type: 
  Country: None (occurrence: None)
  Receive Date: 20090617
  Receipt Date: 20080506
  Transmission Date: 20091009
  Serious: No
  Sender: FDA-Public Use
  Company Number: US-ASTRAZENECA-2008UW09324

PATIENT
  Age: 72 Year
  Sex: Female
  Weight: 65.3 kg

DRUGS (2)
  1. FASLODEX [Suspect]
     Indication: BREAST CANCER
     Route: 030
     Dates: start: 20070901, end: 20080504
  2. ARIMIDEX [Concomitant]
     Route: 048
     Dates: start: 20080501

REACTIONS (2)
  - ANOREXIA [None]
  - WEIGHT DECREASED [None]
